FAERS Safety Report 7921407-1 (Version None)
Quarter: 2011Q4

REPORT INFORMATION
  Report Type: 
  Country: None (occurrence: None)
  Receive Date: 20111117
  Receipt Date: 20111111
  Transmission Date: 20120403
  Serious: Yes (Death)
  Sender: FDA-Public Use
  Company Number: US-ROXANE LABORATORIES, INC.-2011-RO-01642RO

PATIENT
  Age: 6 Year
  Sex: Male
  Weight: 25 kg

DRUGS (3)
  1. HYDROXYZINE [Suspect]
     Indication: SEDATIVE THERAPY
     Dosage: 41 MG
     Route: 048
  2. METHADONE HCL [Suspect]
     Route: 048
  3. CHLORAL HYDRATE [Suspect]
     Indication: SEDATIVE THERAPY
     Dosage: 375 MG
     Route: 048

REACTIONS (2)
  - TOXICITY TO VARIOUS AGENTS [None]
  - DRUG ADMINISTRATION ERROR [None]
